FAERS Safety Report 4649050-0 (Version None)
Quarter: 2005Q2

REPORT INFORMATION
  Report Type: 
  Country: None (occurrence: None)
  Receive Date: 20050429
  Receipt Date: 20050418
  Transmission Date: 20051028
  Serious: Yes (Hospitalization)
  Sender: FDA-Public Use
  Company Number: US-JNJFOC-20050201087

PATIENT
  Sex: Male

DRUGS (3)
  1. RISPERDAL [Suspect]
     Indication: SCHIZOPHRENIA
     Route: 049
  2. ATIVAN [Concomitant]
  3. RIVOTRIL [Concomitant]

REACTIONS (4)
  - CONVULSION [None]
  - HYPONATRAEMIA [None]
  - POLYDIPSIA [None]
  - POLYDIPSIA PSYCHOGENIC [None]
